FAERS Safety Report 12443807 (Version 5)
Quarter: 2016Q3

REPORT INFORMATION
  Report Type: Report from Study
  Country: BE (occurrence: BE)
  Receive Date: 20160607
  Receipt Date: 20160909
  Transmission Date: 20161109
  Serious: Yes (Death)
  Sender: FDA-Public Use
  Company Number: BE-B.I. PHARMACEUTICALS,INC./RIDGEFIELD-2016-BI-36035II

PATIENT
  Age: 50 Year
  Sex: Female
  Weight: 54 kg

DRUGS (8)
  1. TRAZODON [Concomitant]
     Active Substance: TRAZODONE HYDROCHLORIDE
     Indication: DEPRESSION
     Dosage: 0.5 ANZ
     Route: 048
     Dates: start: 2014
  2. LYRICA [Concomitant]
     Active Substance: PREGABALIN
     Indication: POLYNEUROPATHY
     Dosage: 300 MG
     Route: 048
     Dates: start: 2014
  3. BIBF 1120 [Suspect]
     Active Substance: NINTEDANIB
     Indication: CERVIX CANCER METASTATIC
     Dosage: 300 MG
     Route: 048
     Dates: start: 20160528, end: 20160531
  4. OXYNORM [Concomitant]
     Active Substance: OXYCODONE HYDROCHLORIDE
     Indication: PAIN IN EXTREMITY
     Dosage: 20 MG
     Route: 048
     Dates: start: 2014
  5. OXYNORM [Concomitant]
     Active Substance: OXYCODONE HYDROCHLORIDE
     Indication: BACK PAIN
  6. BETAHISTINE [Concomitant]
     Active Substance: BETAHISTINE
     Indication: POLYNEUROPATHY
     Dosage: 16 MG
     Route: 048
     Dates: start: 2014
  7. LASIX [Concomitant]
     Active Substance: FUROSEMIDE
     Indication: OEDEMA PERIPHERAL
     Dosage: 40 MG
     Route: 048
     Dates: start: 20150225
  8. RIVOTRIL [Concomitant]
     Active Substance: CLONAZEPAM
     Indication: POLYNEUROPATHY
     Dosage: 0.5 ANZ
     Route: 048
     Dates: start: 2014

REACTIONS (1)
  - Haemorrhage [Fatal]

NARRATIVE: CASE EVENT DATE: 20160531
